FAERS Safety Report 5277164-3 (Version None)
Quarter: 2007Q1

REPORT INFORMATION
  Report Type: 
  Country: None (occurrence: None)
  Receive Date: 20070322
  Receipt Date: 20070322
  Transmission Date: 20070707
  Serious: Yes (Other)
  Sender: FDA-Public Use
  Company Number: None

PATIENT
  Age: 47 Year
  Sex: Female
  Weight: 61.2356 kg

DRUGS (1)
  1. TAMIFLU [Suspect]
     Indication: INFLUENZA
     Dosage: 1 CAPSULE TWICE A DAY PO
     Route: 048
     Dates: start: 20070307, end: 20070309

REACTIONS (10)
  - ABNORMAL DREAMS [None]
  - ANXIETY [None]
  - BALANCE DISORDER [None]
  - BODY TEMPERATURE DECREASED [None]
  - CHROMATOPSIA [None]
  - DELUSION [None]
  - HALLUCINATION, VISUAL [None]
  - HEAD DISCOMFORT [None]
  - MIDDLE INSOMNIA [None]
  - PSYCHOTIC DISORDER [None]
